FAERS Safety Report 14317921 (Version 4)
Quarter: 2018Q3

REPORT INFORMATION
  Report Type: Spontaneous
  Country: FR (occurrence: FR)
  Receive Date: 20171222
  Receipt Date: 20180921
  Transmission Date: 20181010
  Serious: Yes (Hospitalization)
  Sender: FDA-Public Use
  Company Number: FR-TEVA-2017-FR-838576

PATIENT
  Age: 69 Year
  Sex: Female

DRUGS (8)
  1. FLUOROURACIL. [Suspect]
     Active Substance: FLUOROURACIL
     Indication: COLORECTAL CANCER METASTATIC
     Dosage: REGIMEN 1
     Route: 042
  2. FLUOROURACIL. [Suspect]
     Active Substance: FLUOROURACIL
     Dosage: REGIMEN 2
     Route: 042
     Dates: start: 20170703, end: 20170703
  3. IRINOTECAN [Suspect]
     Active Substance: IRINOTECAN
     Dosage: REGIMEN 2 ; CYCLICAL
     Route: 042
     Dates: start: 20170703, end: 20170703
  4. FOLINIC ACID [Suspect]
     Active Substance: LEUCOVORIN
     Dosage: REGIMEN 2 ; CYCLICAL
     Route: 042
  5. AFLIBERCEPT [Suspect]
     Active Substance: AFLIBERCEPT
     Indication: COLORECTAL CANCER METASTATIC
     Route: 042
     Dates: start: 20170915, end: 20170915
  6. AFLIBERCEPT [Suspect]
     Active Substance: AFLIBERCEPT
     Dosage: REGIMEN 2 ; CYCLICAL
     Route: 042
     Dates: start: 20170703, end: 20170703
  7. IRINOTECAN [Suspect]
     Active Substance: IRINOTECAN
     Indication: COLORECTAL CANCER METASTATIC
     Dosage: REGIMEN 1
     Route: 042
     Dates: start: 20170703, end: 20170703
  8. FOLINIC ACID [Suspect]
     Active Substance: LEUCOVORIN
     Indication: COLORECTAL CANCER METASTATIC
     Route: 042
     Dates: start: 20170703, end: 20170703

REACTIONS (2)
  - Off label use [Unknown]
  - Thrombosis [Recovered/Resolved]

NARRATIVE: CASE EVENT DATE: 20170915
